FAERS Safety Report 6722134-9 (Version None)
Quarter: 2010Q2

REPORT INFORMATION
  Report Type: 
  Country: None (occurrence: None)
  Receive Date: 20100512
  Receipt Date: 20100428
  Transmission Date: 20101027
  Serious: Yes (Hospitalization)
  Sender: FDA-Public Use
  Company Number: US-ELI_LILLY_AND_COMPANY-US201003002306

PATIENT
  Sex: Female

DRUGS (9)
  1. FORTEO [Suspect]
     Indication: OSTEOPOROSIS
     Dosage: 20 UG, DAILY (1/D)
     Dates: start: 20100121
  2. PREMARIN [Concomitant]
     Dosage: 0.3 MG, DAILY (1/D)
  3. SIMVASTATIN [Concomitant]
     Dosage: 20 MG, DAILY (1/D)
     Route: 048
  4. CELEBREX [Concomitant]
     Dosage: 200 MG, DAILY (1/D)
     Route: 048
  5. CALCIUM WITH VITAMIN D [Concomitant]
     Dosage: 500 MG, 2/D
     Route: 048
  6. VITAMIN C [Concomitant]
     Dosage: 500 MG, DAILY (1/D)
  7. MULTIPLE VITAMINS [Concomitant]
     Dosage: UNK, DAILY (1/D)
  8. VITAMIN D [Concomitant]
     Dosage: 1000 MG, 2/D
  9. FLEXERIL [Concomitant]
     Indication: PAIN
     Dosage: UNK, AS NEEDED

REACTIONS (5)
  - BONE PAIN [None]
  - CHEST PAIN [None]
  - CHILLS [None]
  - FATIGUE [None]
  - HEADACHE [None]
